FAERS Safety Report 20853799 (Version 1)
Quarter: 2022Q2

REPORT INFORMATION
  Report Type: Spontaneous
  Country: US (occurrence: None)
  Receive Date: 20220519
  Receipt Date: 20220519
  Transmission Date: 20220720
  Serious: Yes (Hospitalization, Disabling, Other)
  Sender: FDA-Public Use
  Company Number: None

PATIENT
  Age: 70 Year
  Sex: Female

DRUGS (1)
  1. CAPECITABINE [Suspect]
     Active Substance: CAPECITABINE
     Indication: Oesophageal carcinoma
     Dosage: FREQUENCY : TWICE A DAY;?
     Route: 048
     Dates: start: 202204

REACTIONS (9)
  - Diarrhoea [None]
  - Asthenia [None]
  - Constipation [None]
  - Pain in extremity [None]
  - Musculoskeletal disorder [None]
  - Nerve compression [None]
  - Pain [None]
  - Loss of personal independence in daily activities [None]
  - Dizziness [None]

NARRATIVE: CASE EVENT DATE: 20220509
